FAERS Safety Report 14448094 (Version 2)
Quarter: 2018Q1

REPORT INFORMATION
  Report Type: Spontaneous
  Country: JP (occurrence: JP)
  Receive Date: 20180126
  Receipt Date: 20180213
  Transmission Date: 20180509
  Serious: Yes (Other)
  Sender: FDA-Public Use
  Company Number: PHJP2018JP001945

PATIENT
  Age: 37 Year
  Sex: Male

DRUGS (1)
  1. TASIGNA [Suspect]
     Active Substance: NILOTINIB
     Indication: CHRONIC MYELOID LEUKAEMIA
     Dosage: 600 MG, UNK
     Route: 048
     Dates: start: 201710, end: 20180125

REACTIONS (3)
  - Hypothyroidism [Unknown]
  - Blood creatine phosphokinase increased [Not Recovered/Not Resolved]
  - Rhabdomyolysis [Unknown]

NARRATIVE: CASE EVENT DATE: 201801
